FAERS Safety Report 22108400 (Version 1)
Quarter: 2023Q1

REPORT INFORMATION
  Report Type: Spontaneous
  Country: US (occurrence: None)
  Receive Date: 20230316
  Receipt Date: 20230316
  Transmission Date: 20230418
  Serious: Yes (Other)
  Sender: FDA-Public Use
  Company Number: None

PATIENT
  Age: 70 Year
  Sex: Female
  Weight: 70.65 kg

DRUGS (4)
  1. CLARITIN-D 24 HOUR [Suspect]
     Active Substance: LORATADINE\PSEUDOEPHEDRINE SULFATE
     Indication: Product used for unknown indication
     Dosage: OTHER QUANTITY : 15 TABLET(S);?
     Route: 048
  2. SINGULAIR [Concomitant]
     Active Substance: MONTELUKAST SODIUM
  3. Briztri [Concomitant]
  4. FORTEO [Concomitant]
     Active Substance: TERIPARATIDE

REACTIONS (2)
  - Product packaging issue [None]
  - Wrong drug [None]

NARRATIVE: CASE EVENT DATE: 20230308
